FAERS Safety Report 10220056 (Version 1)
Quarter: 2014Q2

REPORT INFORMATION
  Report Type: Spontaneous
  Country: US (occurrence: US)
  Receive Date: 20140605
  Receipt Date: 20140605
  Transmission Date: 20141212
  Serious: No
  Sender: FDA-Public Use
  Company Number: US-009507513-1406USA002897

PATIENT
  Sex: Female

DRUGS (1)
  1. NEXPLANON [Suspect]
     Dosage: 1 STANDARD PACKAGE PREFLAPP OF 1
     Route: 059
     Dates: start: 20130602

REACTIONS (1)
  - Arthralgia [Unknown]
